FAERS Safety Report 18532787 (Version 1)
Quarter: 2020Q4

REPORT INFORMATION
  Report Type: Spontaneous
  Country: JP (occurrence: JP)
  Receive Date: 20201123
  Receipt Date: 20201123
  Transmission Date: 20210114
  Serious: Yes (Other)
  Sender: FDA-Public Use
  Company Number: JP-TEVA-2020-JP-1851031

PATIENT
  Age: 73 Year
  Sex: Male

DRUGS (17)
  1. BEVACIZUMAB. [Suspect]
     Active Substance: BEVACIZUMAB
     Indication: RECTAL CANCER STAGE III
     Dosage: (MFOLFOX6 + BEV COMBINATION REGIMEN; REPEATED EVERY 2 WEEKS)
     Route: 042
  2. 5-FLUOROURACIL [Concomitant]
     Active Substance: FLUOROURACIL
     Indication: RECTAL CANCER STAGE III
     Dosage: (MFOLFOX6 + BEV COMBINATION REGIMEN; REPEATED EVERY 2 WEEKS)
     Route: 040
  3. SALINE [Concomitant]
     Active Substance: SODIUM CHLORIDE
     Dosage: TOTAL 230 ML
     Route: 042
  4. LEUCOVORIN. [Suspect]
     Active Substance: LEUCOVORIN
     Indication: RECTAL CANCER STAGE III
     Dosage: (MFOLFOX6 + BEV COMBINATION REGIMEN; REPEATED EVERY 2 WEEKS)
     Route: 042
  5. DECADRON [Suspect]
     Active Substance: DEXAMETHASONE
     Indication: PROPHYLAXIS
     Route: 048
  6. GLUCOSE [Concomitant]
     Active Substance: DEXTROSE
     Indication: PRODUCT USED FOR UNKNOWN INDICATION
     Route: 042
  7. DEXART [Suspect]
     Active Substance: DEXAMETHASONE SODIUM PHOSPHATE
     Indication: PROPHYLAXIS
     Route: 042
  8. SALINE [Concomitant]
     Active Substance: SODIUM CHLORIDE
     Route: 042
  9. SALINE [Concomitant]
     Active Substance: SODIUM CHLORIDE
     Dosage: (AFTER THE SECOND TIME 60 MIN-30 MIN)
     Route: 042
  10. TS-1 [Concomitant]
     Active Substance: GIMERACIL\OTERACIL\TEGAFUR
     Indication: RECTAL CANCER STAGE III
     Dosage: 40-60 MG ACCORDING TO BODY SURFACE AREA; TWICE DAILY FOR 2 WEEKS (SOX+BEV REGIMEN ; REPEATED EVERY 2
     Route: 048
  11. L-LEVOFOLINATE [Concomitant]
     Indication: PRODUCT USED FOR UNKNOWN INDICATION
     Route: 065
  12. BEVACIZUMAB. [Suspect]
     Active Substance: BEVACIZUMAB
     Dosage: (SOX+BEV REGIMEN ; REPEATED EVERY 3 WEEKS)
     Route: 042
  13. PALONOSETRON. [Concomitant]
     Active Substance: PALONOSETRON HYDROCHLORIDE
     Indication: PRODUCT USED FOR UNKNOWN INDICATION
     Route: 042
  14. OXALIPLATIN. [Suspect]
     Active Substance: OXALIPLATIN
     Indication: RECTAL CANCER STAGE III
     Dosage: (MFOLFOX6 + BEV COMBINATION REGIMEN; REPEATED EVERY 2 WEEKS)
     Route: 042
  15. OXALIPLATIN. [Suspect]
     Active Substance: OXALIPLATIN
     Dosage: (SOX+BEV REGIMEN ; REPEATED EVERY 3 WEEKS)
     Route: 042
  16. 5-FLUOROURACIL [Concomitant]
     Active Substance: FLUOROURACIL
     Dosage: CONTINUOUS INTRAVENOUS INJECTION
     Route: 042
  17. SALINE [Concomitant]
     Active Substance: SODIUM CHLORIDE
     Indication: PRODUCT USED FOR UNKNOWN INDICATION
     Route: 042

REACTIONS (2)
  - Immune thrombocytopenia [Recovered/Resolved]
  - Hypersensitivity [Unknown]
